FAERS Safety Report 20156194 (Version 2)
Quarter: 2022Q1

REPORT INFORMATION
  Report Type: Spontaneous
  Country: PT (occurrence: PT)
  Receive Date: 20211207
  Receipt Date: 20220105
  Transmission Date: 20220423
  Serious: Yes (Hospitalization)
  Sender: FDA-Public Use
  Company Number: PT-MYLANLABS-2021M1089522

PATIENT
  Age: 63 Year
  Sex: Female

DRUGS (4)
  1. LAMOTRIGINE [Suspect]
     Active Substance: LAMOTRIGINE
     Indication: Major depression
     Dosage: 150 MILLIGRAM
  2. QUETIAPINE [Suspect]
     Active Substance: QUETIAPINE
     Indication: Major depression
     Dosage: 300 MILLIGRAM
  3. ARIPIPRAZOLE [Suspect]
     Active Substance: ARIPIPRAZOLE
     Indication: Major depression
     Dosage: 7.5 MILLIGRAM
  4. DIAZEPAM [Suspect]
     Active Substance: DIAZEPAM
     Indication: Major depression
     Dosage: 5 MILLIGRAM

REACTIONS (8)
  - Feeding disorder [Unknown]
  - Depressed mood [Unknown]
  - Weight decreased [Unknown]
  - Delusion [Unknown]
  - Skin exfoliation [Unknown]
  - Skin abrasion [Unknown]
  - Rash papular [Unknown]
  - Pruritus [Unknown]
